FAERS Safety Report 24825763 (Version 2)
Quarter: 2025Q1

REPORT INFORMATION
  Report Type: Spontaneous
  Country: DE (occurrence: DE)
  Receive Date: 20250109
  Receipt Date: 20250327
  Transmission Date: 20250408
  Serious: Yes (Hospitalization)
  Sender: FRESENIUS KABI
  Company Number: DE-ROCHE-10000169834

PATIENT
  Age: 69 Year
  Sex: Male
  Weight: 73 kg

DRUGS (5)
  1. LEUCOVORIN [Suspect]
     Active Substance: LEUCOVORIN\LEUCOVORIN CALCIUM
     Indication: Oesophageal adenocarcinoma
     Dosage: LAST DOSE GIVEN BEFORE ONSET OF RAE: 17-DEC-2024?FOA: INFUSION
     Route: 042
     Dates: start: 20241217
  2. OXALIPLATIN [Suspect]
     Active Substance: OXALIPLATIN
     Indication: Oesophageal adenocarcinoma
     Dosage: LAST DOSE GIVEN BEFORE ONSET OF RAE: 17-DEC-2024?FOA: INFUSION
     Route: 042
     Dates: start: 20241217
  3. ATEZOLIZUMAB [Suspect]
     Active Substance: ATEZOLIZUMAB
     Indication: Oesophageal adenocarcinoma
     Dosage: LAST DOSE GIVEN BEFORE ONSET OF RAE: 17-DEC-2024?FOA: INFUSION
     Route: 042
     Dates: start: 20241217
  4. DOCETAXEL [Suspect]
     Active Substance: DOCETAXEL
     Indication: Oesophageal adenocarcinoma
     Dosage: LAST DOSE GIVEN BEFORE ONSET OF RAE: 17-DEC-2024
     Route: 042
     Dates: start: 20241217
  5. FLUOROURACIL [Suspect]
     Active Substance: FLUOROURACIL
     Indication: Oesophageal adenocarcinoma
     Dosage: LAST DOSE GIVEN BEFORE ONSET OF RAE: 17-DEC-2024?FOA: INFUSION
     Route: 042
     Dates: start: 20241217

REACTIONS (1)
  - Pyrexia [Recovered/Resolved]

NARRATIVE: CASE EVENT DATE: 20241227
